FAERS Safety Report 6390625-9 (Version None)
Quarter: 2009Q4

REPORT INFORMATION
  Report Type: 
  Country: None (occurrence: None)
  Receive Date: 20091006
  Receipt Date: 20091001
  Transmission Date: 20100525
  Serious: Yes (Hospitalization)
  Sender: FDA-Public Use
  Company Number: IT-AVENTIS-200915425EU

PATIENT
  Age: 49 Year
  Sex: Female

DRUGS (9)
  1. LASIX [Suspect]
     Route: 048
     Dates: start: 20090801, end: 20090810
  2. DOXAZOSIN MESYLATE [Suspect]
     Indication: HYPERTENSION
     Route: 048
     Dates: start: 20090801, end: 20090810
  3. ALLOPURINOL [Suspect]
     Indication: CARDIOMYOPATHY
     Route: 048
     Dates: start: 20090801, end: 20090810
  4. CRESTOR [Concomitant]
     Dosage: DOSE: UNK
     Route: 048
  5. NOVONORM [Concomitant]
     Dosage: DOSE: UNK
     Route: 048
  6. ISOSORBIDE DINITRATE [Concomitant]
  7. HUMALOG [Concomitant]
     Dosage: DOSE: UNK
  8. AMLODIPINE [Concomitant]
     Dosage: DOSE: UNK
  9. ACETYL SALICYLIC ACID [Concomitant]
     Indication: CARDIOMYOPATHY
     Dosage: DOSE: UNK

REACTIONS (1)
  - TOXIC EPIDERMAL NECROLYSIS [None]
